FAERS Safety Report 8496759-7 (Version None)
Quarter: 2012Q3

REPORT INFORMATION
  Report Type: 
  Country: None (occurrence: None)
  Receive Date: 20120709
  Receipt Date: 20120702
  Transmission Date: 20120928
  Serious: Yes (Hospitalization)
  Sender: FDA-Public Use
  Company Number: DE-ROCHE-1074222

PATIENT
  Sex: Male

DRUGS (16)
  1. BISOPROLOL FUMARATE [Concomitant]
     Indication: HYPERTENSION
     Route: 048
  2. MABTHERA [Suspect]
     Dosage: REDUCED DOSE
     Dates: start: 20120605
  3. CYCLOPHOSPHAMIDE [Suspect]
     Indication: B-CELL LYMPHOMA
     Route: 042
     Dates: start: 20120417
  4. CYCLOPHOSPHAMIDE [Suspect]
     Dosage: REDUCED DOSE
     Dates: start: 20120605
  5. SIMVASTATIN [Concomitant]
     Indication: HYPERLIPIDAEMIA
     Route: 048
  6. VINCRISTINE [Suspect]
     Indication: B-CELL LYMPHOMA
     Route: 042
     Dates: start: 20120417
  7. VINCRISTINE [Suspect]
     Dosage: REDUCED DOSE
     Dates: start: 20120605
  8. PREDNISONE TAB [Suspect]
     Dosage: REDUCED DOSE
     Dates: start: 20120605
  9. PEGFILGRASTIM [Suspect]
     Indication: B-CELL LYMPHOMA
     Route: 058
     Dates: start: 20120420
  10. MABTHERA [Suspect]
     Indication: B-CELL LYMPHOMA
     Route: 042
     Dates: start: 20120416
  11. DOXORUBICIN HCL [Suspect]
     Indication: B-CELL LYMPHOMA
     Route: 042
     Dates: start: 20120417
  12. LEVOTHYROXINE SODIUM [Concomitant]
     Indication: HYPERTHYROIDISM
     Route: 048
  13. DOXORUBICIN HYDROCHLORIDE [Suspect]
     Dosage: REDUCED DOSE
     Dates: start: 20120605
  14. PREDNISONE TAB [Suspect]
     Indication: B-CELL LYMPHOMA
     Dates: start: 20120417
  15. DIGITOXIN TAB [Concomitant]
     Route: 048
  16. AMIODARONE HCL [Concomitant]
     Indication: TACHYARRHYTHMIA
     Route: 048
     Dates: start: 20120505

REACTIONS (6)
  - DEHYDRATION [None]
  - DIARRHOEA [None]
  - GASTROINTESTINAL INFLAMMATION [None]
  - PAIN OF SKIN [None]
  - PALMAR-PLANTAR ERYTHRODYSAESTHESIA SYNDROME [None]
  - STOMATITIS [None]
